FAERS Safety Report 6303536-1 (Version None)
Quarter: 2009Q3

REPORT INFORMATION
  Report Type: 
  Country: None (occurrence: None)
  Receive Date: 20090807
  Receipt Date: 20090807
  Transmission Date: 20100115
  Serious: Yes (Hospitalization)
  Sender: FDA-Public Use
  Company Number: None

PATIENT
  Age: 71 Year
  Sex: Male
  Weight: 92.307 kg

DRUGS (1)
  1. RITUXAN [Suspect]
     Indication: CHRONIC LYMPHOCYTIC LEUKAEMIA
     Dosage: 788 MG - IVSS
     Dates: start: 20090722

REACTIONS (6)
  - BLOOD PRESSURE DECREASED [None]
  - CHILLS [None]
  - DYSPEPSIA [None]
  - DYSPNOEA [None]
  - NAUSEA [None]
  - OXYGEN SATURATION [None]
